FAERS Safety Report 8306363-9 (Version None)
Quarter: 2012Q2

REPORT INFORMATION
  Report Type: 
  Country: None (occurrence: None)
  Receive Date: 20120423
  Receipt Date: 20120418
  Transmission Date: 20120825
  Serious: Yes (Other)
  Sender: FDA-Public Use
  Company Number: CA-MERCK-1204USA02541

PATIENT
  Age: 90 Year
  Sex: Male

DRUGS (4)
  1. PILOPINE HS [Concomitant]
     Route: 065
  2. COSOPT [Suspect]
     Indication: GLAUCOMA
     Route: 047
     Dates: start: 20040101
  3. ACETAZOLAMIDE [Concomitant]
     Route: 065
  4. LUMIGAN [Concomitant]
     Route: 065

REACTIONS (3)
  - EYE DISORDER [None]
  - FATIGUE [None]
  - HEADACHE [None]
